FAERS Safety Report 24402016 (Version 1)
Quarter: 2024Q4

REPORT INFORMATION
  Report Type: Spontaneous
  Country: US (occurrence: US)
  Receive Date: 20241007
  Receipt Date: 20241007
  Transmission Date: 20250115
  Serious: No
  Sender: RANBAXY
  Company Number: US-SUN PHARMACEUTICAL INDUSTRIES LTD-2023R1-421334

PATIENT
  Sex: Female

DRUGS (1)
  1. CEQUA [Suspect]
     Active Substance: CYCLOSPORINE
     Indication: Dry eye
     Dosage: UNK, BID
     Route: 065
     Dates: start: 20231011, end: 20231121

REACTIONS (4)
  - Reaction to preservatives [Unknown]
  - Pruritus [Unknown]
  - Eye irritation [Unknown]
  - Eye pain [Unknown]
